FAERS Safety Report 4638378-6 (Version None)
Quarter: 2005Q2

REPORT INFORMATION
  Report Type: 
  Country: None (occurrence: None)
  Receive Date: 20050415
  Receipt Date: 20050330
  Transmission Date: 20051028
  Serious: Yes (Hospitalization, Other)
  Sender: FDA-Public Use
  Company Number: DSA_2157_2005

PATIENT
  Age: 60 Year
  Sex: Female
  Weight: 79 kg

DRUGS (1)
  1. EFLORNITHINE HYDROCHLORIDE /PLACEBO [Suspect]
     Indication: HIRSUTISM
     Dosage: 1 DF BID TP
     Route: 064
     Dates: start: 20041202

REACTIONS (1)
  - TACHYARRHYTHMIA [None]
